FAERS Safety Report 11317099 (Version 1)
Quarter: 2015Q3

REPORT INFORMATION
  Report Type: Spontaneous
  Country: US (occurrence: US)
  Receive Date: 20150728
  Receipt Date: 20150728
  Transmission Date: 20151125
  Serious: No
  Sender: FDA-Public Use
  Company Number: US-009507513-1507USA006787

PATIENT
  Sex: Female

DRUGS (1)
  1. NUVARING [Suspect]
     Active Substance: ETHINYL ESTRADIOL\ETONOGESTREL
     Indication: CONTRACEPTION
     Dosage: 1 RING/ 3 WEEKS IN/ 1 WEEK OUT (1 DF, QM)
     Route: 067
     Dates: start: 2002

REACTIONS (2)
  - Device expulsion [Unknown]
  - Abnormal withdrawal bleeding [Unknown]
